FAERS Safety Report 4458846-X (Version None)
Quarter: 2004Q3

REPORT INFORMATION
  Report Type: 
  Country: None (occurrence: None)
  Receive Date: 20040923
  Receipt Date: 20040923
  Transmission Date: 20050211
  Serious: Yes (Other)
  Sender: FDA-Public Use
  Company Number: None

PATIENT
  Age: 68 Year
  Sex: Female

DRUGS (2)
  1. PROCRIT SDV  40000 U/ 1 ML [Suspect]
     Indication: MYELODYSPLASTIC SYNDROME
     Dosage: 60000 U SQ EVERY WEEK
     Dates: start: 20040601, end: 20040901
  2. PROCRIT MDV 20000U/1ML [Suspect]
     Indication: MYELODYSPLASTIC SYNDROME
     Dosage: 60000 U SQ EVERY WEEK
     Dates: start: 20040601, end: 20040901

REACTIONS (4)
  - HAEMATOCRIT DECREASED [None]
  - HAEMOGLOBIN DECREASED [None]
  - INJECTION SITE BURNING [None]
  - PHARMACEUTICAL PRODUCT COMPLAINT [None]
